APPROVED DRUG PRODUCT: ALBENDAZOLE
Active Ingredient: ALBENDAZOLE
Strength: 200MG
Dosage Form/Route: TABLET;ORAL
Application: A211636 | Product #001
Applicant: CHARTWELL RX SCIENCES LLC
Approved: Jun 10, 2020 | RLD: No | RS: No | Type: DISCN